FAERS Safety Report 9318348 (Version 1)
Quarter: 2013Q2

REPORT INFORMATION
  Report Type: Spontaneous
  Country: US (occurrence: US)
  Receive Date: 20130530
  Receipt Date: 20130530
  Transmission Date: 20140414
  Serious: No
  Sender: FDA-Public Use
  Company Number: US-NOVEN-12US005657

PATIENT
  Sex: Female
  Weight: 27.21 kg

DRUGS (2)
  1. DAYTRANA [Suspect]
     Indication: ATTENTION DEFICIT/HYPERACTIVITY DISORDER
     Dosage: 10 MG, QD
     Route: 062
     Dates: start: 201206
  2. ZYRTEC [Concomitant]
     Indication: SEASONAL ALLERGY
     Dosage: 10 MG, QD
     Route: 048

REACTIONS (5)
  - Application site dryness [Not Recovered/Not Resolved]
  - Application site erosion [Not Recovered/Not Resolved]
  - Application site pruritus [Not Recovered/Not Resolved]
  - Drug administered at inappropriate site [Not Recovered/Not Resolved]
  - Application site exfoliation [Not Recovered/Not Resolved]
